FAERS Safety Report 21884049 (Version 10)
Quarter: 2023Q4

REPORT INFORMATION
  Report Type: Report from Study
  Country: NO (occurrence: None)
  Receive Date: 20230119
  Receipt Date: 20231108
  Transmission Date: 20240110
  Serious: Yes (Life-Threatening, Hospitalization)
  Sender: FDA-Public Use
  Company Number: NO-ROCHE-3265543

PATIENT
  Age: 35 Year
  Sex: Female

DRUGS (45)
  1. COBIMETINIB [Suspect]
     Active Substance: COBIMETINIB
     Indication: Neoplasm malignant
     Route: 048
     Dates: start: 20221121, end: 20230110
  2. COBIMETINIB [Suspect]
     Active Substance: COBIMETINIB
     Route: 048
     Dates: start: 20221221, end: 20230105
  3. COBIMETINIB [Suspect]
     Active Substance: COBIMETINIB
     Route: 048
     Dates: start: 20230123, end: 20230219
  4. COBIMETINIB [Suspect]
     Active Substance: COBIMETINIB
     Route: 048
     Dates: start: 20230220, end: 202304
  5. COBIMETINIB [Suspect]
     Active Substance: COBIMETINIB
     Route: 048
     Dates: start: 202304, end: 202305
  6. COBIMETINIB [Suspect]
     Active Substance: COBIMETINIB
     Route: 048
     Dates: start: 202305, end: 2023
  7. COBIMETINIB [Suspect]
     Active Substance: COBIMETINIB
     Route: 048
     Dates: start: 20230816, end: 20230913
  8. COBIMETINIB [Suspect]
     Active Substance: COBIMETINIB
     Route: 048
     Dates: start: 20230914
  9. VEMURAFENIB [Suspect]
     Active Substance: VEMURAFENIB
     Indication: Neoplasm malignant
     Route: 048
     Dates: start: 20221121, end: 20221218
  10. VEMURAFENIB [Suspect]
     Active Substance: VEMURAFENIB
     Route: 048
     Dates: start: 20221221, end: 20230105
  11. VEMURAFENIB [Suspect]
     Active Substance: VEMURAFENIB
     Route: 048
     Dates: start: 20230123, end: 20230219
  12. VEMURAFENIB [Suspect]
     Active Substance: VEMURAFENIB
     Route: 048
     Dates: start: 20230220, end: 202304
  13. VEMURAFENIB [Suspect]
     Active Substance: VEMURAFENIB
     Route: 048
     Dates: start: 20230401, end: 202305
  14. VEMURAFENIB [Suspect]
     Active Substance: VEMURAFENIB
     Route: 048
     Dates: start: 202305, end: 2023
  15. VEMURAFENIB [Suspect]
     Active Substance: VEMURAFENIB
     Route: 048
     Dates: start: 20230816, end: 20230913
  16. VEMURAFENIB [Suspect]
     Active Substance: VEMURAFENIB
     Route: 048
     Dates: start: 20230914
  17. CALCIUM CHLORIDE\POTASSIUM CHLORIDE\SODIUM ACETATE [Concomitant]
     Active Substance: CALCIUM CHLORIDE\POTASSIUM CHLORIDE\SODIUM ACETATE
     Indication: Dehydration
     Dates: start: 20230105, end: 20230105
  18. LACTULOSE [Concomitant]
     Active Substance: LACTULOSE
     Dates: start: 20220526, end: 20221118
  19. PANTOPRAZOLE SODIUM [Concomitant]
     Active Substance: PANTOPRAZOLE SODIUM
     Dates: start: 20220526
  20. METOCLOPRAMIDE HYDROCHLORIDE [Concomitant]
     Active Substance: METOCLOPRAMIDE HYDROCHLORIDE
     Indication: Nausea
     Dates: start: 20221026
  21. OXAZEPAM [Concomitant]
     Active Substance: OXAZEPAM
     Dosage: ANXIETY OR INSOMNIA
     Dates: start: 20221020, end: 20221026
  22. OXAZEPAM [Concomitant]
     Active Substance: OXAZEPAM
     Dates: start: 20221026
  23. OXYCODONE HYDROCHLORIDE [Concomitant]
     Active Substance: OXYCODONE HYDROCHLORIDE
     Indication: Pain
     Dates: start: 20220617, end: 20221118
  24. OXYCODONE HYDROCHLORIDE [Concomitant]
     Active Substance: OXYCODONE HYDROCHLORIDE
     Dates: start: 20230118, end: 20230405
  25. MINIFOM [Concomitant]
     Dates: start: 20221013
  26. ZOFRAN [Concomitant]
     Active Substance: ONDANSETRON HYDROCHLORIDE
     Indication: Nausea
     Dates: start: 20221026, end: 20221118
  27. LINEZOLID [Concomitant]
     Active Substance: LINEZOLID
     Dates: start: 20221212
  28. LINEZOLID [Concomitant]
     Active Substance: LINEZOLID
     Dates: start: 20230409
  29. CIPROFLOXACIN [Concomitant]
     Active Substance: CIPROFLOXACIN
     Dates: start: 20230106, end: 20230116
  30. OXYCONTIN [Concomitant]
     Active Substance: OXYCODONE HYDROCHLORIDE
     Dates: start: 20221122, end: 20230405
  31. SMOFKABIVEN PERI [Concomitant]
     Dates: start: 20230106, end: 20230106
  32. VANCOMYCIN [Concomitant]
     Active Substance: VANCOMYCIN
     Dates: start: 20230107, end: 20230112
  33. DOLCONTIN (NORWAY) [Concomitant]
     Indication: Pain
     Dates: start: 20221117, end: 20221124
  34. DOLCONTIN (NORWAY) [Concomitant]
     Dates: start: 20221125, end: 20221205
  35. DOXYCYCLINE [Concomitant]
     Active Substance: DOXYCYCLINE
     Indication: Acne
     Dates: start: 20221216, end: 20230222
  36. DOXYCYCLINE [Concomitant]
     Active Substance: DOXYCYCLINE
     Dates: start: 20230223
  37. EPIDUO [Concomitant]
     Active Substance: ADAPALENE\BENZOYL PEROXIDE
     Indication: Acne
     Dates: start: 20230118
  38. BACTRIM [Concomitant]
     Active Substance: SULFAMETHOXAZOLE\TRIMETHOPRIM
     Dosage: 400/80 MG
     Dates: start: 20230202, end: 20230209
  39. BACTRIM [Concomitant]
     Active Substance: SULFAMETHOXAZOLE\TRIMETHOPRIM
     Dates: start: 20230215, end: 20230331
  40. ANIDULAFUNGIN [Concomitant]
     Active Substance: ANIDULAFUNGIN
     Dates: start: 20230331
  41. MEROPENEM [Concomitant]
     Active Substance: MEROPENEM
     Dates: start: 20230331
  42. MORFIN [Concomitant]
     Indication: Pain
     Dates: start: 20230405
  43. AZTREONAM [Concomitant]
     Active Substance: AZTREONAM
     Dates: start: 20230409
  44. ALBUMIN HUMAN [Concomitant]
     Active Substance: ALBUMIN HUMAN
     Indication: Hypoalbuminaemia
     Dosage: 200 OTHER
     Dates: start: 20230331
  45. IMODIUM [Concomitant]
     Active Substance: LOPERAMIDE HYDROCHLORIDE
     Indication: Diarrhoea
     Dates: start: 20230202, end: 20230216

REACTIONS (3)
  - Pyrexia [Recovered/Resolved]
  - Infection [Recovered/Resolved]
  - Infection [Recovered/Resolved with Sequelae]

NARRATIVE: CASE EVENT DATE: 20221130
